FAERS Safety Report 15874815 (Version 1)
Quarter: 2019Q1

REPORT INFORMATION
  Report Type: Other
  Country: US (occurrence: US)
  Receive Date: 20190126
  Receipt Date: 20190126
  Transmission Date: 20190417
  Serious: No
  Sender: FDA-Public Use
  Company Number: US-ACORDA-ACO_152453_2018

PATIENT
  Sex: Female

DRUGS (3)
  1. AMPYRA [Suspect]
     Active Substance: DALFAMPRIDINE
     Indication: MULTIPLE SCLEROSIS
     Dosage: 10 MG, Q 12 HRS
     Route: 065
     Dates: start: 20180326
  2. AMPYRA [Suspect]
     Active Substance: DALFAMPRIDINE
     Dosage: 10 MG, BID
     Route: 065
  3. AMPYRA [Suspect]
     Active Substance: DALFAMPRIDINE
     Dosage: 10 MG, BID
     Route: 065

REACTIONS (11)
  - Fall [Unknown]
  - Dizziness [Unknown]
  - Product dose omission [Unknown]
  - Wrong technique in product usage process [Recovered/Resolved]
  - Mobility decreased [Unknown]
  - Back pain [Recovering/Resolving]
  - Vertigo [Unknown]
  - Adverse event [Recovered/Resolved]
  - Fatigue [Unknown]
  - Incorrect dose administered [Recovered/Resolved]
  - Pain [Unknown]
